FAERS Safety Report 9526152 (Version 4)
Quarter: 2013Q4

REPORT INFORMATION
  Report Type: Spontaneous
  Country: US (occurrence: US)
  Receive Date: 20130916
  Receipt Date: 20131025
  Transmission Date: 20140711
  Serious: No
  Sender: FDA-Public Use
  Company Number: US-009507513-1308USA014815

PATIENT
  Age: 22 Year
  Sex: Female
  Weight: 70.75 kg

DRUGS (1)
  1. NEXPLANON [Suspect]
     Indication: CONTRACEPTION
     Dosage: UNK
     Route: 059
     Dates: start: 20130723

REACTIONS (1)
  - Device kink [Not Recovered/Not Resolved]
